FAERS Safety Report 8556794-7 (Version None)
Quarter: 2012Q3

REPORT INFORMATION
  Report Type: 
  Country: None (occurrence: None)
  Receive Date: 20120719
  Receipt Date: 20120713
  Transmission Date: 20120928
  Serious: Yes (Other)
  Sender: FDA-Public Use
  Company Number: 136690

PATIENT
  Age: 61 Year
  Sex: Male

DRUGS (2)
  1. . [Concomitant]
  2. KETAMINE HCL [Suspect]
     Indication: MAJOR DEPRESSION
     Dosage: 300-600 MG DAILY IN 3 DIVIDED DOSES
     Dates: start: 20080501

REACTIONS (5)
  - CORNEAL DYSTROPHY [None]
  - DISCOMFORT [None]
  - LACRIMATION INCREASED [None]
  - VISUAL ACUITY REDUCED [None]
  - CORNEAL OEDEMA [None]
